FAERS Safety Report 16405336 (Version 1)
Quarter: 2019Q2

REPORT INFORMATION
  Report Type: Spontaneous
  Country: US (occurrence: US)
  Receive Date: 20190607
  Receipt Date: 20190607
  Transmission Date: 20190711
  Serious: No
  Sender: FDA-Public Use
  Company Number: US-TEVA-2019-US-1049697

PATIENT
  Sex: Male
  Weight: 68 kg

DRUGS (5)
  1. CLOZAPINE. [Suspect]
     Active Substance: CLOZAPINE
     Route: 065
  2. LORAZEPAM. [Concomitant]
     Active Substance: LORAZEPAM
  3. OLANZAPINE. [Concomitant]
     Active Substance: OLANZAPINE
     Indication: ABNORMAL BEHAVIOUR
  4. REMERON [Concomitant]
     Active Substance: MIRTAZAPINE
  5. FLUVOXAMINE [Concomitant]
     Active Substance: FLUVOXAMINE

REACTIONS (3)
  - Rash generalised [Unknown]
  - Rash maculo-papular [Unknown]
  - Abnormal behaviour [Unknown]
